FAERS Safety Report 7829999-8 (Version None)
Quarter: 2011Q4

REPORT INFORMATION
  Report Type: 
  Country: None (occurrence: None)
  Receive Date: 20111021
  Receipt Date: 20111012
  Transmission Date: 20120403
  Serious: Yes (Other)
  Sender: FDA-Public Use
  Company Number: US-US-EMD SERONO, INC.-7089436

PATIENT
  Sex: Male

DRUGS (2)
  1. REBIF [Suspect]
     Indication: PRODUCT USED FOR UNKNOWN INDICATION
     Route: 058
     Dates: start: 20091014, end: 20111010
  2. BG12 [Concomitant]
     Dates: start: 20110401, end: 20110901

REACTIONS (3)
  - CENTRAL NERVOUS SYSTEM LESION [None]
  - OPTIC NEURITIS [None]
  - DIZZINESS [None]
